FAERS Safety Report 6456247-6 (Version None)
Quarter: 2009Q4

REPORT INFORMATION
  Report Type: 
  Country: None (occurrence: None)
  Receive Date: 20091125
  Receipt Date: 20091116
  Transmission Date: 20100525
  Serious: Yes (Other)
  Sender: FDA-Public Use
  Company Number: US-ROCHE-664434

PATIENT
  Sex: Male
  Weight: 65 kg

DRUGS (3)
  1. ISOTRETINOIN [Suspect]
     Indication: DRUG USE FOR UNKNOWN INDICATION
     Dosage: THE PATIENT WAS DISPENSED ACCUTANE 20 MG CAPSULE ON 6 JUL 2009
     Route: 048
  2. ISOTRETINOIN [Suspect]
     Dosage: THE PATIENT WAS DISPENSED ACCUTANE 40 MG CAPSULE ON 7 AUG 2009 AND 14 SEP 2009
     Route: 048
  3. ISOTRETINOIN [Suspect]
     Route: 048

REACTIONS (3)
  - AGGRESSION [None]
  - ANGER [None]
  - SUICIDAL IDEATION [None]
